FAERS Safety Report 15779114 (Version 13)
Quarter: 2020Q2

REPORT INFORMATION
  Report Type: Spontaneous
  Country: FR (occurrence: FR)
  Receive Date: 20190101
  Receipt Date: 20200602
  Transmission Date: 20200713
  Serious: Yes (Hospitalization, Disabling, Other)
  Sender: FDA-Public Use
  Company Number: FR-ASCEND THERAPEUTICS-2060731

PATIENT
  Age: 28 Year
  Sex: Female

DRUGS (37)
  1. CYPROTERONE ACETATE (CYPROTERONE ACETATE)?INDICATION FOR USE: HAIR LOS [Suspect]
     Active Substance: CYPROTERONE ACETATE
     Route: 048
     Dates: start: 2008
  2. CYPROTERONE ACETATE (CYPROTERONE ACETATE) [Suspect]
     Active Substance: CYPROTERONE ACETATE
     Route: 048
     Dates: start: 20090715
  3. ESTRADIOL. [Suspect]
     Active Substance: ESTRADIOL
     Route: 048
     Dates: start: 2008, end: 20170920
  4. CYPROTERONE ACETATE (CYPROTERONE ACETATE) [Suspect]
     Active Substance: CYPROTERONE ACETATE
     Route: 048
     Dates: start: 20110705, end: 20110830
  5. CYPROTERONE ACETATE/ETHINYLESTRADIOL (CYPROTERONE ACETATE)?INDICATION [Suspect]
     Active Substance: CYPROTERONE ACETATE\ETHINYL ESTRADIOL
     Dates: start: 20161124
  6. ESTRADIOL. [Suspect]
     Active Substance: ESTRADIOL
     Route: 048
  7. CYPROTERONE ACETATE [Suspect]
     Active Substance: CYPROTERONE ACETATE
     Route: 048
     Dates: start: 20170510, end: 20170920
  8. OROMONE (ESTRADIOL) [Concomitant]
     Active Substance: ESTRADIOL
     Dates: start: 2007
  9. CYPROTERONE ACETATE (CYPROTERONE ACETATE)?INDICATION FOR USE: ACNE [Suspect]
     Active Substance: CYPROTERONE ACETATE
     Route: 048
     Dates: start: 20090705, end: 20100820
  10. CYPROTERONE ACETATE (CYPROTERONE ACETATE) [Suspect]
     Active Substance: CYPROTERONE ACETATE
     Route: 048
     Dates: start: 20140818, end: 20170510
  11. OROMONE (ESTRADIOL) [Concomitant]
     Active Substance: ESTRADIOL
     Dates: start: 201312
  12. ANDROCUR (CYPROTERONE ACETATE) [Suspect]
     Active Substance: CYPROTERONE ACETATE
     Route: 048
     Dates: start: 20161124
  13. CYPROTERONE ACETATE (CYPROTERONE ACETATE)?INDICATION FOR USE: ALOPECIA [Suspect]
     Active Substance: CYPROTERONE ACETATE
     Route: 048
     Dates: start: 20070525, end: 2009
  14. CYPROTERONE ACETATE/ETHINYLESTRADIOL (CYPROTERONE ACETATE)?INDICATION [Suspect]
     Active Substance: CYPROTERONE ACETATE\ETHINYL ESTRADIOL
     Dates: start: 1997
  15. ANDROCUR (CYPROTERONE ACETATE) [Suspect]
     Active Substance: CYPROTERONE ACETATE
     Route: 048
     Dates: start: 20090705, end: 20100820
  16. ANDROCUR (CYPROTERONE ACETATE) [Suspect]
     Active Substance: CYPROTERONE ACETATE
     Route: 048
     Dates: start: 20100715
  17. ANDROCUR (CYPROTERONE ACETATE) [Suspect]
     Active Substance: CYPROTERONE ACETATE
     Route: 048
     Dates: start: 20110830
  18. ESTROGEL [Suspect]
     Active Substance: ESTRADIOL
     Indication: PRODUCT USED FOR UNKNOWN INDICATION
     Dates: start: 20070528, end: 2009
  19. CYPROTERONE ACETATE (CYPROTERONE ACETATE) [Suspect]
     Active Substance: CYPROTERONE ACETATE
     Route: 048
     Dates: start: 20101221, end: 20110705
  20. ESTRADIOL. [Suspect]
     Active Substance: ESTRADIOL
     Route: 048
     Dates: start: 20090705, end: 20170920
  21. CYPROTERONE ACETATE (CYPROTERONE ACTETATE) [Suspect]
     Active Substance: CYPROTERONE ACETATE
     Route: 048
     Dates: end: 20130816
  22. CYPROTERONE ACETATE [Suspect]
     Active Substance: CYPROTERONE ACETATE
     Route: 048
     Dates: start: 20161124
  23. OROMONE (ESTRADIOL) [Concomitant]
     Active Substance: ESTRADIOL
     Dates: start: 2008, end: 20170920
  24. ANDROCUR (CYPROTERONE ACETATE)?INDICATION FOR USE: HAIR LOSS [Suspect]
     Active Substance: CYPROTERONE ACETATE
     Route: 048
     Dates: start: 20101221, end: 20110705
  25. ANDROCUR (CYPROTERONE ACETATE) [Suspect]
     Active Substance: CYPROTERONE ACETATE
     Route: 048
     Dates: start: 20070528, end: 2009
  26. CYPERTERONE ACETATE (CYPROTERONE ACETATE) [Suspect]
     Active Substance: CYPROTERONE ACETATE
     Route: 048
     Dates: start: 20130816, end: 20140818
  27. OROMONE (ESTRADIOL)?INDICATION FOR USE: CONTRACEPTION [Concomitant]
     Active Substance: ESTRADIOL
     Dates: start: 2008, end: 20170920
  28. CYPROTERONE ACETATE (CYPROTERONE ACETATE) [Suspect]
     Active Substance: CYPROTERONE ACETATE
     Route: 048
     Dates: start: 20100820
  29. CYPROTERONE ACETATE (CYPROTERONE ACETATE) [Suspect]
     Active Substance: CYPROTERONE ACETATE
     Route: 048
     Dates: start: 20110830
  30. OROMONE (ESTRADIOL) [Concomitant]
     Active Substance: ESTRADIOL
     Dates: start: 200907
  31. ANDROCUR (CYPROTERONE ACETATE) [Suspect]
     Active Substance: CYPROTERONE ACETATE
     Route: 048
     Dates: end: 20130816
  32. ANDROCUR (CYPROTERONE ACETATE) [Suspect]
     Active Substance: CYPROTERONE ACETATE
     Route: 048
     Dates: start: 20170510, end: 20170920
  33. ANDROCUR (CYPROTERONE ACETATE) [Suspect]
     Active Substance: CYPROTERONE ACETATE
     Route: 048
     Dates: start: 20130816, end: 20140818
  34. ESTROGEL [Suspect]
     Active Substance: ESTRADIOL
  35. ANDROCUR (CYPROTERONE ACETATE)?INDICATION FOR USE: ACNE [Suspect]
     Active Substance: CYPROTERONE ACETATE
     Route: 048
     Dates: start: 20110705, end: 20110830
  36. ANDROCUR (CYPROTERONE ACETATE)?INDICATION FOR USE: CONTRACEPTION [Suspect]
     Active Substance: CYPROTERONE ACETATE
     Route: 048
     Dates: start: 20100820, end: 201307
  37. ANDROCUR (CYPROTERONE ACETATE) [Suspect]
     Active Substance: CYPROTERONE ACETATE
     Route: 048
     Dates: start: 20140818, end: 20170510

REACTIONS (52)
  - Hemiparaesthesia [Unknown]
  - Meningioma [Not Recovered/Not Resolved]
  - Paraesthesia [Recovered/Resolved with Sequelae]
  - Diplopia [Not Recovered/Not Resolved]
  - Balance disorder [Not Recovered/Not Resolved]
  - Aphasia [Unknown]
  - Formication [Recovered/Resolved with Sequelae]
  - Headache [Unknown]
  - Off label use [None]
  - Cognitive disorder [Recovered/Resolved with Sequelae]
  - Language disorder [Unknown]
  - Disorientation [Unknown]
  - Eye haematoma [Unknown]
  - Aphasia [Unknown]
  - Disturbance in attention [Recovered/Resolved with Sequelae]
  - Brain herniation [Unknown]
  - Neck pain [Unknown]
  - Coordination abnormal [Not Recovered/Not Resolved]
  - Dysarthria [Not Recovered/Not Resolved]
  - Mobility decreased [Recovered/Resolved with Sequelae]
  - Product use in unapproved indication [None]
  - Muscular weakness [Not Recovered/Not Resolved]
  - Asthenia [Recovered/Resolved with Sequelae]
  - Pain [Unknown]
  - Dyskinesia [Unknown]
  - Hemiplegia [Not Recovered/Not Resolved]
  - Fatigue [Unknown]
  - Hemiparesis [Unknown]
  - Joint range of motion decreased [Recovered/Resolved with Sequelae]
  - Partial seizures [Unknown]
  - Intracranial mass [Unknown]
  - Hemiplegia [Unknown]
  - Muscular weakness [Not Recovered/Not Resolved]
  - Hypoaesthesia [Unknown]
  - Balance disorder [Recovered/Resolved with Sequelae]
  - Paraesthesia [Recovered/Resolved with Sequelae]
  - Language disorder [Recovered/Resolved with Sequelae]
  - Executive dysfunction [Recovered/Resolved with Sequelae]
  - Loss of personal independence in daily activities [Unknown]
  - Eye haematoma [Unknown]
  - Memory impairment [Recovered/Resolved with Sequelae]
  - Facial paralysis [Unknown]
  - Fatigue [Recovered/Resolved with Sequelae]
  - Clumsiness [Unknown]
  - Disturbance in attention [Unknown]
  - Hemiparaesthesia [Unknown]
  - Nervous system disorder [Unknown]
  - Gait disturbance [Not Recovered/Not Resolved]
  - Weight increased [Not Recovered/Not Resolved]
  - Visual impairment [Unknown]
  - Speech disorder [Recovered/Resolved with Sequelae]
  - Product dose omission [None]

NARRATIVE: CASE EVENT DATE: 2017
